FAERS Safety Report 5634512-X (Version None)
Quarter: 2008Q1

REPORT INFORMATION
  Report Type: 
  Country: None (occurrence: None)
  Receive Date: 20080222
  Receipt Date: 20080122
  Transmission Date: 20080703
  Serious: No
  Sender: FDA-Public Use
  Company Number: US-BAYER-200811916NA

PATIENT
  Sex: Female

DRUGS (1)
  1. CIPRO [Suspect]
     Indication: DRUG USE FOR UNKNOWN INDICATION
     Route: 048

REACTIONS (4)
  - ARTHRALGIA [None]
  - CHEST PAIN [None]
  - MYALGIA [None]
  - RESPIRATORY DISORDER [None]
